FAERS Safety Report 23873520 (Version 1)
Quarter: 2024Q2

REPORT INFORMATION
  Report Type: Spontaneous
  Country: US (occurrence: US)
  Receive Date: 20240520
  Receipt Date: 20240520
  Transmission Date: 20240716
  Serious: No
  Sender: FDA-Public Use
  Company Number: US-STERISCIENCE B.V.-2024-ST-000172

PATIENT
  Age: 26 Year
  Sex: Female

DRUGS (1)
  1. ONDANSETRON [Suspect]
     Active Substance: ONDANSETRON
     Indication: Mechanical ventilation complication
     Dosage: 4 MILLIGRAM, Q6H
     Route: 042

REACTIONS (1)
  - Off label use [Unknown]
